FAERS Safety Report 6809307-1 (Version None)
Quarter: 2010Q2

REPORT INFORMATION
  Report Type: 
  Country: None (occurrence: None)
  Receive Date: 20100630
  Receipt Date: 20100616
  Transmission Date: 20101027
  Serious: Yes (Other)
  Sender: FDA-Public Use
  Company Number: GB-RANBAXY-2010RR-35223

PATIENT
  Age: 30 Year
  Sex: Female
  Weight: 58 kg

DRUGS (5)
  1. FLUOXETINE [Suspect]
     Indication: DEPRESSION
     Dosage: 40 MG, UNK
     Route: 048
     Dates: start: 20090501
  2. LANSOPRAZOLE [Concomitant]
     Indication: DYSPEPSIA
     Dosage: 30 MG, QD
     Route: 048
     Dates: start: 20090407, end: 20100206
  3. NORDETTE-28 [Concomitant]
     Indication: CONTRACEPTION
     Dosage: UNK
     Route: 048
     Dates: start: 20061020, end: 20091201
  4. RANITIDINE [Concomitant]
     Indication: DYSPEPSIA
     Dosage: 150 MG, UNK
     Route: 048
     Dates: start: 20100202, end: 20100206
  5. TRAMADOL [Concomitant]
     Indication: DYSMENORRHOEA
     Dosage: 2 DF, TID
     Route: 048
     Dates: start: 20080101, end: 20100206

REACTIONS (1)
  - ABORTION MISSED [None]
